FAERS Safety Report 5331028-5 (Version None)
Quarter: 2007Q2

REPORT INFORMATION
  Report Type: 
  Country: None (occurrence: None)
  Receive Date: 20070522
  Receipt Date: 20070511
  Transmission Date: 20071010
  Serious: Yes (Other)
  Sender: FDA-Public Use
  Company Number: US-GENENTECH-240478

PATIENT
  Sex: Female

DRUGS (2)
  1. LUCENTIS [Suspect]
     Indication: MACULAR DEGENERATION
     Dosage: 0.05 MG, UNK
     Dates: start: 20061107
  2. BETADINE [Concomitant]
     Indication: PREMEDICATION

REACTIONS (1)
  - TRANSIENT ISCHAEMIC ATTACK [None]
